FAERS Safety Report 6819803-9 (Version None)
Quarter: 2010Q3

REPORT INFORMATION
  Report Type: 
  Country: None (occurrence: None)
  Receive Date: 20100707
  Receipt Date: 20100624
  Transmission Date: 20110219
  Serious: Yes (Other)
  Sender: FDA-Public Use
  Company Number: PHHY2009JP12452

PATIENT
  Sex: Female

DRUGS (17)
  1. TASIGNA [Suspect]
     Indication: CHRONIC MYELOID LEUKAEMIA
     Dosage: 200 MG DAILY
     Route: 048
     Dates: start: 20090220, end: 20090305
  2. TASIGNA [Suspect]
     Dosage: 400 MG DAILY
     Route: 048
     Dates: start: 20090306, end: 20090311
  3. TASIGNA [Suspect]
     Dosage: 200 MG DAILY
     Route: 048
     Dates: start: 20090312, end: 20090507
  4. TASIGNA [Suspect]
     Dosage: 200 MG DAILY
     Route: 048
     Dates: start: 20090508, end: 20090722
  5. TASIGNA [Suspect]
     Dosage: 200 MG/DAY
     Route: 048
     Dates: start: 20090723, end: 20091009
  6. TASIGNA [Suspect]
     Dosage: 200 MG FIVE TIMES A WEEK
     Route: 048
     Dates: start: 20091010, end: 20091211
  7. TASIGNA [Suspect]
     Dosage: 200 MG THREE TIMES A WEEK
     Route: 048
     Dates: start: 20091212, end: 20100127
  8. TASIGNA [Suspect]
     Dosage: 200 MG FIVE TIMES A WEEK
     Route: 048
     Dates: start: 20100128
  9. BLOOD TRANSFUSION, AUXILIARY PRODUCTS [Concomitant]
  10. CRAVIT [Concomitant]
     Dosage: UNK
     Route: 048
     Dates: start: 20090220, end: 20090402
  11. MYSLEE [Concomitant]
     Dosage: UNK
     Dates: start: 20090220, end: 20090402
  12. DIFLUCAN [Concomitant]
     Dosage: UNK
     Route: 048
     Dates: start: 20090220, end: 20090326
  13. LUPRAC [Concomitant]
     Dosage: UNK
     Route: 048
     Dates: start: 20090220, end: 20090318
  14. ALDACTONE [Concomitant]
     Dosage: UNK
     Route: 048
     Dates: start: 20090220, end: 20090318
  15. BROTIZOLAM [Concomitant]
     Dosage: 0.25 MG, UNK
     Route: 048
     Dates: start: 20090403
  16. RED BLOOD CELLS [Concomitant]
     Dosage: 2 U, UNK
     Dates: start: 20090610
  17. PLATELETS [Concomitant]
     Dosage: 10 U, UNK
     Dates: start: 20090610, end: 20091225

REACTIONS (8)
  - ANAEMIA [None]
  - BLOOD BILIRUBIN INCREASED [None]
  - MALAISE [None]
  - MONOCYTE PERCENTAGE INCREASED [None]
  - PLATELET COUNT DECREASED [None]
  - PRURITUS [None]
  - PURPURA [None]
  - RASH PRURITIC [None]
